FAERS Safety Report 19465566 (Version 1)
Quarter: 2021Q2

REPORT INFORMATION
  Report Type: Report from Study
  Country: PE (occurrence: PE)
  Receive Date: 20210624
  Receipt Date: 20210624
  Transmission Date: 20210717
  Serious: Yes (Other)
  Sender: FDA-Public Use
  Company Number: PE-SEATTLE GENETICS-2021SGN02579

PATIENT
  Sex: Male

DRUGS (1)
  1. BRENTUXIMAB VEDOTIN [Suspect]
     Active Substance: BRENTUXIMAB VEDOTIN
     Indication: HODGKIN^S DISEASE
     Dosage: 90 MILLIGRAM, Q3WEEKS
     Route: 042
     Dates: start: 20210322

REACTIONS (4)
  - COVID-19 [Unknown]
  - Somnolence [Unknown]
  - COVID-19 pneumonia [Unknown]
  - Diarrhoea [Unknown]
